FAERS Safety Report 23383241 (Version 1)
Quarter: 2024Q1

REPORT INFORMATION
  Report Type: Spontaneous
  Country: US (occurrence: US)
  Receive Date: 20240109
  Receipt Date: 20240109
  Transmission Date: 20240410
  Serious: No
  Sender: FDA-Public Use
  Company Number: US-SANDOZ-SDZ2024US002316

PATIENT
  Sex: Female

DRUGS (1)
  1. ZIEXTENZO [Suspect]
     Active Substance: PEGFILGRASTIM-BMEZ
     Indication: Drug ineffective
     Dosage: 6 MG, INJECT 1 SYRINGE EVERY 21 DAYS
     Route: 050
     Dates: start: 20230711, end: 20231219

REACTIONS (1)
  - Drug ineffective [Not Recovered/Not Resolved]
